FAERS Safety Report 5113919-3 (Version None)
Quarter: 2006Q3

REPORT INFORMATION
  Report Type: 
  Country: None (occurrence: None)
  Receive Date: 20060922
  Receipt Date: 20060922
  Transmission Date: 20061208
  Serious: Yes (Other)
  Sender: FDA-Public Use
  Company Number: None

PATIENT
  Age: 12 Year
  Sex: Male
  Weight: 40.8237 kg

DRUGS (3)
  1. CREST PRO HEALTH RINSE 0.07% CETYLPYRIDINIUM PROCTOR AND GAMBLE [Suspect]
     Indication: DENTAL CARIES
     Dosage: 20 ML TWICE A DAY TOP
     Route: 061
     Dates: start: 20060727, end: 20060921
  2. CREST PRO HEALTH RINSE 0.07% CETYLPYRIDINIUM PROCTOR AND GAMBLE [Suspect]
     Indication: DENTAL PLAQUE
     Dosage: 20 ML TWICE A DAY TOP
     Route: 061
     Dates: start: 20060727, end: 20060921
  3. CREST PRO HEALTH RINSE 0.07% CETYLPYRIDINIUM PROCTOR AND GAMBLE [Suspect]
     Indication: TOOTH DEPOSIT
     Dosage: 20 ML TWICE A DAY TOP
     Route: 061
     Dates: start: 20060727, end: 20060921

REACTIONS (2)
  - BURNING SENSATION [None]
  - TOOTH DISCOLOURATION [None]
